FAERS Safety Report 11772480 (Version 1)
Quarter: 2015Q4

REPORT INFORMATION
  Report Type: Spontaneous
  Country: US (occurrence: US)
  Receive Date: 20151124
  Receipt Date: 20151124
  Transmission Date: 20160304
  Serious: No
  Sender: FDA-Public Use
  Company Number: US-GLAXOSMITHKLINE-US2015166397

PATIENT
  Age: 53 Year
  Sex: Male

DRUGS (1)
  1. ABREVA [Suspect]
     Active Substance: DOCOSANOL
     Indication: ORAL HERPES
     Dosage: 3 TIMES A DAY,UNK
     Dates: start: 20151108, end: 20151109

REACTIONS (5)
  - Oral herpes [Recovered/Resolved]
  - Inappropriate schedule of drug administration [Unknown]
  - Condition aggravated [Recovered/Resolved]
  - Cheilitis [Recovered/Resolved]
  - Oral discomfort [Recovered/Resolved]

NARRATIVE: CASE EVENT DATE: 20151109
